FAERS Safety Report 9295826 (Version 1)
Quarter: 2013Q1

REPORT INFORMATION
  Report Type: Spontaneous
  Country: US (occurrence: None)
  Receive Date: 20130103
  Receipt Date: 20130103
  Transmission Date: 20140127
  Serious: Yes (Other)
  Sender: FDA-Public Use
  Company Number: DSA_47833_2011

PATIENT
  Sex: Male
  Weight: 82.1 kg

DRUGS (1)
  1. XENAZINE [Suspect]
     Indication: HUNTINGTON^S DISEASE
     Route: 048
     Dates: start: 20110223, end: 20110308

REACTIONS (3)
  - Torticollis [None]
  - Muscle rigidity [None]
  - Tremor [None]
